FAERS Safety Report 7994259-1 (Version None)
Quarter: 2011Q4

REPORT INFORMATION
  Report Type: 
  Country: None (occurrence: None)
  Receive Date: 20111220
  Receipt Date: 20111213
  Transmission Date: 20120403
  Serious: Yes (Death)
  Sender: FDA-Public Use
  Company Number: JP-COVIDIEN/TYCO HEALTHCARE/MALLINCKRODT-T201102909

PATIENT
  Sex: Male

DRUGS (1)
  1. OPTIRAY 160 [Suspect]
     Indication: ANGIOGRAM
     Dosage: 110 ML, SINGLE
     Dates: start: 20111001, end: 20111001

REACTIONS (1)
  - SHOCK [None]
